FAERS Safety Report 8044652-6 (Version None)
Quarter: 2012Q1

REPORT INFORMATION
  Report Type: 
  Country: None (occurrence: None)
  Receive Date: 20120113
  Receipt Date: 20120110
  Transmission Date: 20120608
  Serious: Yes (Other)
  Sender: FDA-Public Use
  Company Number: US-JNJFOC-20080706846

PATIENT
  Age: 40 Year
  Sex: Male
  Weight: 81.65 kg

DRUGS (2)
  1. SUDAFED 24 HOUR [Suspect]
     Route: 048
  2. SUDAFED 24 HOUR [Suspect]
     Indication: HYPERSENSITIVITY
     Route: 048
     Dates: start: 20080630, end: 20080701

REACTIONS (3)
  - DYSURIA [None]
  - INSOMNIA [None]
  - ERECTILE DYSFUNCTION [None]
